FAERS Safety Report 4413482-6 (Version None)
Quarter: 2004Q2

REPORT INFORMATION
  Report Type: 
  Country: None (occurrence: None)
  Receive Date: 20040630
  Receipt Date: 20040325
  Transmission Date: 20050107
  Serious: No
  Sender: FDA-Public Use
  Company Number: 04P-163-0254526-00

PATIENT
  Age: 72 Year
  Sex: Female
  Weight: 63.5036 kg

DRUGS (9)
  1. HUMIRA [Suspect]
     Indication: RHEUMATOID ARTHRITIS
     Dosage: 40 MG, 1 IN 1 WK SUBCUTANEOUS
     Route: 058
     Dates: start: 20030301
  2. SOTALOL HYDROCHLORIDE [Concomitant]
  3. LEVOTHYROXINE SODIUM [Concomitant]
  4. NORVASC [Concomitant]
  5. ZOCOR [Concomitant]
  6. ESOMEPRAZOLE [Concomitant]
  7. METHOTREXATE [Concomitant]
  8. FOLIC ACID [Concomitant]
  9. PREDNISONE TAB [Concomitant]

REACTIONS (1)
  - INJECTION SITE BURNING [None]
